FAERS Safety Report 18376306 (Version 1)
Quarter: 2020Q4

REPORT INFORMATION
  Report Type: Spontaneous
  Country: US (occurrence: US)
  Receive Date: 20201005
  Receipt Date: 20201005
  Transmission Date: 20210114
  Serious: No
  Sender: FDA-Public Use
  Company Number: None

PATIENT
  Age: 2 Decade
  Sex: Male

DRUGS (1)
  1. HYDROXYCHLOROQUINE [Suspect]
     Active Substance: HYDROXYCHLOROQUINE
     Indication: COVID-19
     Dosage: DOSE: 400MG DAY 1/ 200MG DAY 2-5/
     Route: 048
     Dates: start: 2020

REACTIONS (2)
  - Electrocardiogram QT prolonged [None]
  - Product use in unapproved indication [None]
